FAERS Safety Report 7501929-8 (Version None)
Quarter: 2011Q2

REPORT INFORMATION
  Report Type: 
  Country: None (occurrence: None)
  Receive Date: 20110525
  Receipt Date: 20110520
  Transmission Date: 20111010
  Serious: No
  Sender: FDA-Public Use
  Company Number: US-PFIZER INC-2011108519

PATIENT
  Sex: Male
  Weight: 76.19 kg

DRUGS (2)
  1. CHANTIX [Suspect]
     Dosage: 1 MG, 2X/DAY
     Route: 048
     Dates: start: 20110101, end: 20110513
  2. CHANTIX [Suspect]
     Indication: SMOKING CESSATION THERAPY
     Dosage: 0.5 MG, 1X/DAY
     Route: 048
     Dates: start: 20110428, end: 20110101

REACTIONS (5)
  - DIARRHOEA [None]
  - IRRITABILITY [None]
  - HEADACHE [None]
  - ABDOMINAL DISCOMFORT [None]
  - HYPERHIDROSIS [None]
